FAERS Safety Report 8976755 (Version 3)
Quarter: 2014Q3

REPORT INFORMATION
  Report Type: Spontaneous
  Country: US (occurrence: US)
  Receive Date: 20121220
  Receipt Date: 20140721
  Transmission Date: 20150326
  Serious: Yes (Hospitalization, Disabling)
  Sender: FDA-Public Use
  Company Number: US-009507513-2012SP011820

PATIENT
  Sex: Female
  Weight: 129.28 kg

DRUGS (1)
  1. NUVARING [Suspect]
     Active Substance: ETHINYL ESTRADIOL\ETONOGESTREL
     Indication: MENSTRUAL CYCLE MANAGEMENT
     Dosage: UNK
     Route: 067
     Dates: start: 2010, end: 201003

REACTIONS (16)
  - Peripheral venous disease [Unknown]
  - Cervical dysplasia [Unknown]
  - Off label use [Unknown]
  - Deep vein thrombosis [Recovered/Resolved]
  - Polycystic ovaries [Unknown]
  - Dysfunctional uterine bleeding [Recovering/Resolving]
  - Muscle spasms [Unknown]
  - Thrombophlebitis superficial [Unknown]
  - Ovarian cyst [Unknown]
  - Headache [Recovering/Resolving]
  - Pain in extremity [Recovered/Resolved]
  - Fall [Unknown]
  - Papilloma viral infection [Unknown]
  - Menstruation irregular [Unknown]
  - Dizziness [Unknown]
  - Coccydynia [Unknown]

NARRATIVE: CASE EVENT DATE: 2010
